FAERS Safety Report 17600420 (Version 1)
Quarter: 2020Q1

REPORT INFORMATION
  Report Type: Spontaneous
  Country: GB (occurrence: GB)
  Receive Date: 20200330
  Receipt Date: 20200330
  Transmission Date: 20200409
  Serious: Yes (Death, Other)
  Sender: FDA-Public Use
  Company Number: GB-PFIZER INC-2020093116

PATIENT
  Age: 54 Year
  Sex: Female
  Weight: 74 kg

DRUGS (28)
  1. DOSULEPIN HYDROCHLORIDE [Concomitant]
     Active Substance: DOTHIEPIN HYDROCHLORIDE
     Indication: DEPRESSION
     Dosage: UNK
  2. MEROPENEM. [Concomitant]
     Active Substance: MEROPENEM
     Dosage: 6 G, 1X/DAY
  3. MEROPENEM. [Concomitant]
     Active Substance: MEROPENEM
     Dosage: 4 G, 1X/DAY
     Dates: start: 20200131
  4. TIGECYCLINE. [Suspect]
     Active Substance: TIGECYCLINE
     Indication: MYCOBACTERIAL INFECTION
     Dosage: 100 MG, 1X/DAY
     Route: 042
     Dates: start: 20200128, end: 20200205
  5. PREDNISOLONE. [Concomitant]
     Active Substance: PREDNISOLONE
     Dosage: UNK
  6. PARACETAMOL [Concomitant]
     Active Substance: ACETAMINOPHEN
     Dosage: UNK
  7. CETIRIZINE [Concomitant]
     Active Substance: CETIRIZINE HYDROCHLORIDE
     Dosage: UNK
  8. CALCICHEW D3 [Concomitant]
     Active Substance: CALCIUM\CHOLECALCIFEROL
     Dosage: UNK
  9. TACROLIMUS. [Concomitant]
     Active Substance: TACROLIMUS
     Dosage: UNK
  10. AZITHROMYCIN ANHYDROUS. [Concomitant]
     Active Substance: AZITHROMYCIN ANHYDROUS
     Dosage: 500 MG, DAILY
     Route: 048
     Dates: start: 20200130
  11. LORAZEPAM. [Concomitant]
     Active Substance: LORAZEPAM
     Dosage: UNK
  12. TINZAPARIN SODIUM [Concomitant]
     Active Substance: TINZAPARIN SODIUM
     Dosage: UNK
  13. NYSTATIN. [Concomitant]
     Active Substance: NYSTATIN
     Dosage: UNK
  14. AVIBACTAM [Concomitant]
     Active Substance: AVIBACTAM
     Dosage: 7.5 G, 1X/DAY
  15. CHLORPHENAMINE [Concomitant]
     Active Substance: CHLORPHENIRAMINE MALEATE
     Dosage: UNK
  16. AZITHROMYCIN ANHYDROUS. [Concomitant]
     Active Substance: AZITHROMYCIN ANHYDROUS
     Dosage: 500 MG, 1X/DAY
     Route: 042
  17. RANITIDINE. [Concomitant]
     Active Substance: RANITIDINE
     Dosage: UNK
  18. RAMIPRIL. [Concomitant]
     Active Substance: RAMIPRIL
     Dosage: UNK
  19. LEVOMEPROMAZINE [Concomitant]
     Active Substance: LEVOMEPROMAZINE
     Dosage: UNK
  20. CEFTAZIDIME. [Concomitant]
     Active Substance: CEFTAZIDIME
     Dosage: 7.5 G, 1X/DAY
  21. MORPHINE SULFATE. [Concomitant]
     Active Substance: MORPHINE SULFATE
     Dosage: UNK
  22. OMEPRAZOLE SODIUM [Concomitant]
     Active Substance: OMEPRAZOLE SODIUM
     Dosage: UNK
  23. CEFTAZIDIME. [Concomitant]
     Active Substance: CEFTAZIDIME
     Dosage: 4.5 G, 1X/DAY
     Dates: start: 20200131
  24. PRAVASTATIN. [Concomitant]
     Active Substance: PRAVASTATIN
     Dosage: UNK
  25. GABAPENTIN. [Concomitant]
     Active Substance: GABAPENTIN
     Dosage: UNK
  26. AVIBACTAM [Concomitant]
     Active Substance: AVIBACTAM
     Dosage: 4.5 G, 1X/DAY
     Dates: start: 20200131
  27. COTRIMOXAZOLE [Concomitant]
     Active Substance: SULFAMETHOXAZOLE\TRIMETHOPRIM
     Dosage: UNK
  28. ONDANSETRON HYDROCHLORIDE. [Concomitant]
     Active Substance: ONDANSETRON HYDROCHLORIDE
     Dosage: UNK

REACTIONS (7)
  - Pulseless electrical activity [Unknown]
  - Pancreatitis acute [Fatal]
  - Product use in unapproved indication [Unknown]
  - Cardiac arrest [Unknown]
  - Nausea [Not Recovered/Not Resolved]
  - Off label use [Unknown]
  - Abdominal pain upper [Not Recovered/Not Resolved]

NARRATIVE: CASE EVENT DATE: 2020
